FAERS Safety Report 10404595 (Version 1)
Quarter: 2014Q2

REPORT INFORMATION
  Report Type: Spontaneous
  Country: US (occurrence: None)
  Receive Date: 20140530
  Receipt Date: 20140530
  Transmission Date: 20141212
  Serious: Yes (Other)
  Sender: FDA-Public Use
  Company Number: PHEH2014US004987

PATIENT
  Age: 41 Year
  Sex: Female

DRUGS (1)
  1. AFINITOR (RAD) TABLET, 10MG [Suspect]
     Indication: ANGIOMYOLIPOMA

REACTIONS (5)
  - Lung infiltration [None]
  - Blood alkaline phosphatase increased [None]
  - Cough [None]
  - Dyspnoea [None]
  - Anaemia [None]
